FAERS Safety Report 6911406-0 (Version None)
Quarter: 2010Q3

REPORT INFORMATION
  Report Type: 
  Country: None (occurrence: None)
  Receive Date: 20100806
  Receipt Date: 20100726
  Transmission Date: 20110219
  Serious: Yes (Other)
  Sender: FDA-Public Use
  Company Number: US-JNJFOC-20100708651

PATIENT
  Sex: Female
  Weight: 65.77 kg

DRUGS (1)
  1. NUCYNTA [Suspect]
     Indication: BACK PAIN
     Dosage: DAILY
     Route: 048

REACTIONS (5)
  - INSOMNIA [None]
  - NAUSEA [None]
  - PALPITATIONS [None]
  - RECTAL HAEMORRHAGE [None]
  - VOMITING [None]
